FAERS Safety Report 5971944-4 (Version None)
Quarter: 2008Q4

REPORT INFORMATION
  Report Type: 
  Country: None (occurrence: None)
  Receive Date: 20081121
  Receipt Date: 20081119
  Transmission Date: 20090506
  Serious: Yes (Hospitalization)
  Sender: FDA-Public Use
  Company Number: GXKR2008DE10968

PATIENT
  Sex: Male
  Weight: 74 kg

DRUGS (10)
  1. ACETAMINOPHEN [Suspect]
     Dosage: 500 MG, QID, ORAL
     Route: 048
     Dates: start: 20080725, end: 20080805
  2. CIPROBAY (CIPROFLOXACIN) (CIPROFLOXACIN) FILM-COATED TABLET, 250MG [Suspect]
     Dosage: 250 MG, BID, ORAL
     Route: 048
     Dates: start: 20080729, end: 20080807
  3. MIRTAZAPINE [Suspect]
     Indication: DEPRESSION
     Dosage: 30 MG DAILY EXCEPTING 23 JUL 2008: 1X1 TABLET AT 15 MG, ORAL
     Route: 048
     Dates: start: 20080723, end: 20080807
  4. ENALAPRIL MALEATE [Concomitant]
  5. FLUOXETINE [Concomitant]
  6. IBUHEXAL /00109201/ (IBUPROFEN) [Concomitant]
  7. TAMSULOSIN HCL [Concomitant]
  8. PANTOPRAZOLE SODIUM [Concomitant]
  9. REQUIP [Concomitant]
  10. LORAZEPAM [Concomitant]

REACTIONS (1)
  - HEPATITIS ACUTE [None]
